FAERS Safety Report 13268964 (Version 1)
Quarter: 2017Q1

REPORT INFORMATION
  Report Type: Report from Study
  Country: US (occurrence: US)
  Receive Date: 20170224
  Receipt Date: 20170224
  Transmission Date: 20170428
  Serious: Yes (Other)
  Sender: FDA-Public Use
  Company Number: US-AMGEN-USASL2017026508

PATIENT
  Age: 59 Year
  Sex: Female

DRUGS (1)
  1. ENBREL [Suspect]
     Active Substance: ETANERCEPT
     Indication: ANKYLOSING SPONDYLITIS
     Dosage: 50 MG, UNK
     Route: 065

REACTIONS (6)
  - Laboratory test abnormal [Unknown]
  - Joint lock [Not Recovered/Not Resolved]
  - Neutrophil count increased [Unknown]
  - Pleurisy [Unknown]
  - Ankylosing spondylitis [Unknown]
  - Therapy non-responder [Unknown]
